FAERS Safety Report 24782722 (Version 1)
Quarter: 2024Q4

REPORT INFORMATION
  Report Type: Report from Study
  Country: NL (occurrence: NL)
  Receive Date: 20241227
  Receipt Date: 20241227
  Transmission Date: 20250115
  Serious: Yes (Other)
  Sender: PFIZER
  Company Number: NL-PFIZER INC-202400330928

PATIENT

DRUGS (2)
  1. GEMCITABINE HYDROCHLORIDE [Suspect]
     Active Substance: GEMCITABINE HYDROCHLORIDE
     Indication: Cholangiocarcinoma
     Dosage: 1000 MG/M2, CYCLIC (EVERY 3 WEEKS, ON DAYS 1 AND 8, FOLLOWED BY A 1-WEEK REST PERIOD)
  2. CISPLATIN [Suspect]
     Active Substance: CISPLATIN
     Indication: Cholangiocarcinoma
     Dosage: 25 MG/M2, EVERY 3 WEEKS, CYCLIC, ON DAYS 1 AND 8, FOLLOWED BY A 1-WEEK REST PERIOD

REACTIONS (3)
  - Pyrexia [Unknown]
  - Fatigue [Unknown]
  - Bacteraemia [Unknown]
